FAERS Safety Report 12689043 (Version 1)
Quarter: 2016Q3

REPORT INFORMATION
  Report Type: Spontaneous
  Country: US (occurrence: US)
  Receive Date: 20160826
  Receipt Date: 20160826
  Transmission Date: 20161109
  Serious: No
  Sender: FDA-Public Use
  Company Number: US-ASTRAZENECA-2016SE90962

PATIENT
  Age: 37 Year
  Sex: Female
  Weight: 95 kg

DRUGS (2)
  1. NEXIUM 24HR [Suspect]
     Active Substance: ESOMEPRAZOLE MAGNESIUM
     Indication: GASTROOESOPHAGEAL REFLUX DISEASE
     Dosage: 1 CAPSULE, DAILY, IN THE MORNING
     Route: 048
     Dates: start: 20160818, end: 20160820
  2. NEXIUM 24HR [Suspect]
     Active Substance: ESOMEPRAZOLE MAGNESIUM
     Indication: GASTROOESOPHAGEAL REFLUX DISEASE
     Dosage: 1 CAPSULE, DAILY, IN THE MORNING
     Route: 048
     Dates: start: 20160816, end: 20160816

REACTIONS (8)
  - Respiratory disorder [Recovered/Resolved]
  - Dry throat [Recovered/Resolved]
  - Nasal dryness [Recovered/Resolved]
  - Tongue dry [Recovered/Resolved]
  - Choking sensation [Recovered/Resolved]
  - Dysphagia [Recovered/Resolved]
  - Drug dose omission [Unknown]
  - Product use issue [Unknown]

NARRATIVE: CASE EVENT DATE: 201608
